FAERS Safety Report 23224169 (Version 1)
Quarter: 2023Q4

REPORT INFORMATION
  Report Type: Spontaneous
  Country: US (occurrence: US)
  Receive Date: 20231124
  Receipt Date: 20231124
  Transmission Date: 20240109
  Serious: Yes (Hospitalization)
  Sender: FDA-Public Use
  Company Number: US-SA-2023SA364718

PATIENT
  Age: 22 Year
  Sex: Male

DRUGS (4)
  1. ELOCTATE [Suspect]
     Active Substance: EFMOROCTOCOG ALFA
     Indication: Haemorrhage
     Dosage: 3490 U (+/-10%), QW FOR PROPHYLAXIS
     Route: 042
  2. ELOCTATE [Suspect]
     Active Substance: EFMOROCTOCOG ALFA
     Indication: Haemorrhage
     Dosage: 3490 U (+/-10%), QW FOR PROPHYLAXIS
     Route: 042
  3. ELOCTATE [Suspect]
     Active Substance: EFMOROCTOCOG ALFA
     Dosage: 3490 U (+/-10%) THREE DAYS EACH AND ONCE DAILY AS NEEDED FOR BLEEDING EPISODES
     Route: 042
  4. ELOCTATE [Suspect]
     Active Substance: EFMOROCTOCOG ALFA
     Dosage: 3490 U (+/-10%) THREE DAYS EACH AND ONCE DAILY AS NEEDED FOR BLEEDING EPISODES
     Route: 042

REACTIONS (2)
  - Haemorrhage [Unknown]
  - Back disorder [Unknown]

NARRATIVE: CASE EVENT DATE: 20231114
